FAERS Safety Report 6430336-4 (Version None)
Quarter: 2009Q4

REPORT INFORMATION
  Report Type: 
  Country: None (occurrence: None)
  Receive Date: 20091106
  Receipt Date: 20091029
  Transmission Date: 20100525
  Serious: Yes (Hospitalization)
  Sender: FDA-Public Use
  Company Number: JP-ABBOTT-09P-087-0599728-00

PATIENT
  Age: 55 Year
  Sex: Male

DRUGS (3)
  1. LEUPLIN SR FOR INJECTION 11.25 MG [Suspect]
     Indication: PROSTATE CANCER
     Route: 058
     Dates: start: 20070717, end: 20080404
  2. CASODEX [Concomitant]
     Indication: PROSTATE CANCER
     Route: 048
     Dates: start: 20070717, end: 20080627
  3. MAGNESIUM OXIDE HEAVY [Concomitant]
     Indication: CONSTIPATION
     Route: 048

REACTIONS (2)
  - CONDITION AGGRAVATED [None]
  - INGUINAL HERNIA [None]
